FAERS Safety Report 15349563 (Version 3)
Quarter: 2018Q4

REPORT INFORMATION
  Report Type: Report from Study
  Country: US (occurrence: US)
  Receive Date: 20180904
  Receipt Date: 20181011
  Transmission Date: 20190204
  Serious: Yes (Hospitalization)
  Sender: FDA-Public Use
  Company Number: US-BAYER-2018-151455

PATIENT
  Age: 72 Year
  Sex: Male

DRUGS (13)
  1. NEXAVAR [Suspect]
     Active Substance: SORAFENIB
     Indication: METASTASES TO LUNG
     Dosage: 600 MG DAILY
     Route: 048
  2. LEVOTHYROXIN [Concomitant]
     Active Substance: LEVOTHYROXINE
  3. FUROSEMIDE. [Concomitant]
     Active Substance: FUROSEMIDE
  4. ATORVASTATIN CALCIUM. [Concomitant]
     Active Substance: ATORVASTATIN CALCIUM
  5. NEXAVAR [Suspect]
     Active Substance: SORAFENIB
     Indication: METASTASES TO LUNG
     Dosage: 200 MG TAKE 1 TABLET BY MOUTH EVERY MORNING AND
     Route: 048
     Dates: start: 20170803
  6. AMMONIUM LACTATE. [Concomitant]
     Active Substance: AMMONIUM LACTATE
  7. SUTENT [Concomitant]
     Active Substance: SUNITINIB MALATE
  8. VIAGRA [Concomitant]
     Active Substance: SILDENAFIL CITRATE
  9. MELATONIN [Concomitant]
     Active Substance: MELATONIN
  10. BENZONATATE. [Concomitant]
     Active Substance: BENZONATATE
  11. CARVEDILOL. [Concomitant]
     Active Substance: CARVEDILOL
  12. VENTOLIN [Concomitant]
     Active Substance: ALBUTEROL SULFATE
  13. CLOPIDOGREL [Concomitant]
     Active Substance: CLOPIDOGREL BISULFATE

REACTIONS (5)
  - Product use in unapproved indication [None]
  - Cardiac operation [Not Recovered/Not Resolved]
  - Hospitalisation [Not Recovered/Not Resolved]
  - Off label use [None]
  - Coronary artery bypass [None]

NARRATIVE: CASE EVENT DATE: 2018
